FAERS Safety Report 18536548 (Version 1)
Quarter: 2020Q4

REPORT INFORMATION
  Report Type: Spontaneous
  Country: US (occurrence: US)
  Receive Date: 20201123
  Receipt Date: 20201123
  Transmission Date: 20210114
  Serious: Yes (Hospitalization, Other)
  Sender: FDA-Public Use
  Company Number: US-JNJFOC-A-US2020-201825

PATIENT
  Age: 60 Year
  Sex: Female
  Weight: 74.91 kg

DRUGS (2)
  1. VELETRI [Suspect]
     Active Substance: EPOPROSTENOL
     Indication: PULMONARY ARTERIAL HYPERTENSION
     Dosage: 18 NG/KG, PER MIN
     Route: 042
     Dates: start: 20200128
  2. OPSUMIT [Suspect]
     Active Substance: MACITENTAN
     Indication: PULMONARY ARTERIAL HYPERTENSION
     Route: 048
     Dates: start: 20200107

REACTIONS (6)
  - Decreased appetite [Unknown]
  - Pain [Unknown]
  - Body temperature fluctuation [Unknown]
  - Weight decreased [Unknown]
  - Hospitalisation [Unknown]
  - Pain in jaw [Unknown]
